FAERS Safety Report 8431518-2 (Version None)
Quarter: 2012Q2

REPORT INFORMATION
  Report Type: 
  Country: None (occurrence: None)
  Receive Date: 20120607
  Receipt Date: 20120607
  Transmission Date: 20120825
  Serious: Yes (Hospitalization)
  Sender: FDA-Public Use
  Company Number: None

PATIENT
  Age: 84 Year
  Sex: Male

DRUGS (1)
  1. TIKOSYN [Suspect]
     Dosage: 500 MCG BID PO MAR 2009 OR BEFORE UNTIL RECENTL
     Route: 048
     Dates: start: 20090301

REACTIONS (1)
  - CARDIAC FAILURE CONGESTIVE [None]
